FAERS Safety Report 9283728 (Version 1)
Quarter: 2013Q2

REPORT INFORMATION
  Report Type: Report from Study
  Country: JP (occurrence: JP)
  Receive Date: 20130510
  Receipt Date: 20130510
  Transmission Date: 20140414
  Serious: Yes (Hospitalization)
  Sender: FDA-Public Use
  Company Number: JP-GLAXOSMITHKLINE-B0890242A

PATIENT
  Age: 61 Year
  Sex: Female
  Weight: 52 kg

DRUGS (9)
  1. LAPATINIB [Suspect]
     Indication: BREAST CANCER
     Dosage: 1000MG PER DAY
     Dates: start: 20130121, end: 20130426
  2. TRASTUZUMAB [Suspect]
     Indication: BREAST CANCER
     Route: 042
     Dates: start: 20130121
  3. PACLITAXEL [Suspect]
     Indication: BREAST CANCER
     Route: 042
     Dates: start: 20130305
  4. FEXOFENADINE HYDROCHLORIDE [Concomitant]
     Indication: DERMATITIS ACNEIFORM
     Dates: start: 20130204, end: 20130430
  5. MINOCYCLINE HYDROCHLORIDE [Concomitant]
     Indication: DERMATITIS ACNEIFORM
     Dates: start: 20130204, end: 20130430
  6. HYDROCORTISONE BUTYRATE [Concomitant]
     Indication: DERMATITIS ACNEIFORM
     Route: 061
     Dates: start: 20130204, end: 20130430
  7. WHITE PETROLATUM [Concomitant]
     Indication: DERMATITIS ACNEIFORM
     Route: 061
     Dates: start: 20130204, end: 20130430
  8. VITAMIN A [Concomitant]
     Indication: DERMATITIS ACNEIFORM
     Route: 061
     Dates: start: 20130204, end: 20130430
  9. HEPARINOID [Concomitant]
     Indication: DERMATITIS ACNEIFORM
     Dates: start: 20130305, end: 20130430

REACTIONS (2)
  - Loss of consciousness [Recovered/Resolved]
  - Dermatitis acneiform [Not Recovered/Not Resolved]
